FAERS Safety Report 11587927 (Version 1)
Quarter: 2015Q4

REPORT INFORMATION
  Report Type: Spontaneous
  Country: US (occurrence: US)
  Receive Date: 20151001
  Receipt Date: 20151001
  Transmission Date: 20160304
  Serious: No
  Sender: FDA-Public Use
  Company Number: US-MEDA-2015010073

PATIENT
  Age: 7 Year
  Sex: Female
  Weight: 25 kg

DRUGS (8)
  1. FELBATOL [Suspect]
     Active Substance: FELBAMATE
     Indication: MYOCLONIC EPILEPSY
     Dosage: 300 MG QAM AND NOON; 200 MG QHS
     Route: 048
     Dates: start: 201301
  2. PREVACID [Suspect]
     Active Substance: LANSOPRAZOLE
     Indication: OESOPHAGITIS
     Dates: start: 20141118
  3. PREVACID [Suspect]
     Active Substance: LANSOPRAZOLE
     Indication: GASTRIC ULCER
     Dates: start: 20141021, end: 20141117
  4. ONFI [Concomitant]
     Active Substance: CLOBAZAM
     Indication: EPILEPSY
  5. PREVACID [Suspect]
     Active Substance: LANSOPRAZOLE
     Indication: GASTRIC ULCER
     Dates: start: 20141118
  6. PREVACID [Suspect]
     Active Substance: LANSOPRAZOLE
     Indication: GASTRIC ULCER
  7. PREVACID [Suspect]
     Active Substance: LANSOPRAZOLE
     Indication: OESOPHAGITIS
  8. PREVACID [Suspect]
     Active Substance: LANSOPRAZOLE
     Indication: OESOPHAGITIS
     Dates: start: 20141021, end: 20141117

REACTIONS (4)
  - Gastric ulcer [Not Recovered/Not Resolved]
  - Drug level decreased [Unknown]
  - Drug interaction [Unknown]
  - Oesophagitis [Not Recovered/Not Resolved]

NARRATIVE: CASE EVENT DATE: 20141015
